FAERS Safety Report 7595345-0 (Version None)
Quarter: 2011Q3

REPORT INFORMATION
  Report Type: 
  Country: None (occurrence: None)
  Receive Date: 20110707
  Receipt Date: 20110704
  Transmission Date: 20111222
  Serious: Yes (Death)
  Sender: FDA-Public Use
  Company Number: FR-PFIZER INC-2011148578

PATIENT
  Sex: Male

DRUGS (1)
  1. SOMATROPIN RDNA [Suspect]

REACTIONS (1)
  - ANEURYSM RUPTURED [None]
